FAERS Safety Report 7756457-1 (Version None)
Quarter: 2011Q3

REPORT INFORMATION
  Report Type: 
  Country: None (occurrence: None)
  Receive Date: 20110901
  Receipt Date: 20110824
  Transmission Date: 20111222
  Serious: Yes (Other)
  Sender: FDA-Public Use
  Company Number: 2011029641

PATIENT
  Age: 66 Year
  Sex: Female
  Weight: 76.2043 kg

DRUGS (8)
  1. HIZENTRA [Suspect]
     Indication: IMMUNODEFICIENCY COMMON VARIABLE
     Dosage: (SUBCUTANEOUS), (12 G 1X/WEEK, (60 ML) THREE TO FOUR SITES OVER ONE TO TWO HOURS SUBCUTANEOUS)
     Route: 058
     Dates: start: 20110110
  2. CO-Q10 (UBIDECARENONE) [Concomitant]
  3. MULTIVITAMIN (DAILY MULTIVITAMIN) [Concomitant]
  4. QVAR [Concomitant]
  5. VITAMIN B12 [Concomitant]
  6. SYNTHROID [Concomitant]
  7. OBETROL [Concomitant]
  8. DYAZIDE [Concomitant]

REACTIONS (4)
  - CHILLS [None]
  - INFECTION [None]
  - TREMOR [None]
  - RESPIRATORY TRACT INFECTION [None]
